FAERS Safety Report 22339917 (Version 1)
Quarter: 2023Q2

REPORT INFORMATION
  Report Type: Spontaneous
  Country: CH (occurrence: CH)
  Receive Date: 20230518
  Receipt Date: 20230518
  Transmission Date: 20230721
  Serious: Yes (Hospitalization, Other)
  Sender: FDA-Public Use
  Company Number: None

PATIENT
  Sex: Male

DRUGS (13)
  1. KEYTRUDA [Suspect]
     Active Substance: PEMBROLIZUMAB
     Dosage: CYCLICAL
     Route: 041
     Dates: start: 20230201, end: 202304
  2. IBUPROFEN [Suspect]
     Active Substance: IBUPROFEN
     Dosage: 400 MILLIGRAM, TID
     Route: 048
     Dates: start: 20230131, end: 202304
  3. NOVALGIN (METAMIZOLE SODIUM) [Suspect]
     Active Substance: METAMIZOLE SODIUM
     Dosage: 1000 MILLIGRAM, TID
     Route: 048
     Dates: start: 20230131, end: 202304
  4. CARBOPLATIN [Suspect]
     Active Substance: CARBOPLATIN
     Dosage: CYCLICAL
     Route: 041
     Dates: start: 20230201
  5. ABRAXANE [Suspect]
     Active Substance: PACLITAXEL
     Dosage: D 1 D 8 D 15  ; CYCLICAL
     Route: 041
     Dates: start: 20230201
  6. INDERAL [Concomitant]
     Active Substance: PROPRANOLOL HYDROCHLORIDE
     Dosage: 1 DOSAGE FORM, TID
     Route: 048
  7. CANDESARTAN SPIRIG HC [Concomitant]
     Dosage: 1 DOSAGE FORM, QD
     Route: 048
  8. TORSEMIDE [Concomitant]
     Active Substance: TORSEMIDE
     Dosage: 1 DOSAGE FORM, QD
     Route: 048
  9. DUTASTERIDE\TAMSULOSIN [Concomitant]
     Active Substance: DUTASTERIDE\TAMSULOSIN
     Dosage: 1 DOSAGE FORM, QD
     Route: 048
  10. NASONEX [Concomitant]
     Active Substance: MOMETASONE FUROATE
     Dosage: 1 DOSAGE FORM, TID
     Route: 045
  11. IPRATROPIUM BROMIDE [Concomitant]
     Active Substance: IPRATROPIUM BROMIDE\IPRATROPIUM BROMIDE ANHYDROUS
     Dosage: 1 DOSAGE FORM, TID
     Route: 055
  12. OLODATEROL HYDROCHLORIDE\TIOTROPIUM BROMIDE MONOHYDRATE [Concomitant]
     Active Substance: OLODATEROL HYDROCHLORIDE\TIOTROPIUM BROMIDE MONOHYDRATE
     Dosage: 2 DOSAGE FORM, QD
     Route: 055
  13. AMLODIPINUM [Concomitant]
     Dosage: 2.5 MILLIGRAM, QD
     Route: 048

REACTIONS (1)
  - Immune-mediated hepatic disorder [Recovering/Resolving]
